FAERS Safety Report 6024293-2 (Version None)
Quarter: 2008Q4

REPORT INFORMATION
  Report Type: 
  Country: None (occurrence: None)
  Receive Date: 20081231
  Receipt Date: 20081229
  Transmission Date: 20090506
  Serious: Yes (Other)
  Sender: FDA-Public Use
  Company Number: NL-JNJFOC-20081206993

PATIENT
  Sex: Female
  Weight: 63 kg

DRUGS (2)
  1. CONCERTA [Suspect]
     Indication: ATTENTION DEFICIT/HYPERACTIVITY DISORDER
  2. YASMIN [Concomitant]

REACTIONS (3)
  - LYMPHADENOPATHY [None]
  - URINARY TRACT INFECTION [None]
  - WEIGHT DECREASED [None]
